FAERS Safety Report 8459042-1 (Version None)
Quarter: 2012Q2

REPORT INFORMATION
  Report Type: 
  Country: None (occurrence: None)
  Receive Date: 20120618
  Receipt Date: 20120606
  Transmission Date: 20120825
  Serious: Yes (Hospitalization)
  Sender: FDA-Public Use
  Company Number: UTC-018965

PATIENT
  Age: 77 Year
  Sex: Female
  Weight: 68.18 kg

DRUGS (3)
  1. TYVASO [Suspect]
     Indication: COR PULMONALE CHRONIC
     Dosage: 18 TO 54 MCGS (4 I N 1 D), INHALATION
     Route: 055
     Dates: start: 20120510, end: 20120514
  2. TYVASO [Suspect]
     Indication: PULMONARY HYPERTENSION
     Dosage: 18 TO 54 MCGS (4 I N 1 D), INHALATION
     Route: 055
     Dates: start: 20120510, end: 20120514
  3. REVATIO [Concomitant]

REACTIONS (3)
  - CHEST PAIN [None]
  - PERICARDIAL EFFUSION [None]
  - CEREBROVASCULAR ACCIDENT [None]
